FAERS Safety Report 9521008 (Version 3)
Quarter: 2013Q3

REPORT INFORMATION
  Report Type: Report from Study
  Country: DE (occurrence: DE)
  Receive Date: 20130913
  Receipt Date: 20130919
  Transmission Date: 20140515
  Serious: Yes (Death, Hospitalization)
  Sender: FDA-Public Use
  Company Number: DE-ROCHE-1274078

PATIENT
  Age: 69 Year
  Sex: Male
  Weight: 57 kg

DRUGS (6)
  1. BEVACIZUMAB [Suspect]
     Indication: RECTAL CANCER METASTATIC
     Route: 042
     Dates: start: 20130528, end: 20130806
  2. RIBOFLUOR [Suspect]
     Indication: RECTAL CANCER METASTATIC
     Route: 042
     Dates: start: 20130527, end: 20130806
  3. IRINOTECAN [Suspect]
     Indication: RECTAL CANCER METASTATIC
     Route: 042
     Dates: start: 20130527, end: 20130806
  4. SORTIS [Concomitant]
     Indication: HYPERLIPIDAEMIA
     Route: 048
     Dates: end: 20130901
  5. MOXONIDIN [Concomitant]
     Indication: HYPERTENSION
     Route: 048
     Dates: end: 20130901
  6. RASILEZ [Concomitant]
     Indication: HYPERTENSION
     Route: 048
     Dates: end: 20130901

REACTIONS (3)
  - Death [Fatal]
  - Diarrhoea [Recovering/Resolving]
  - Dyspnoea [Recovering/Resolving]
